FAERS Safety Report 6449869-X (Version None)
Quarter: 2009Q4

REPORT INFORMATION
  Report Type: 
  Country: None (occurrence: None)
  Receive Date: 20091123
  Receipt Date: 20091112
  Transmission Date: 20100525
  Serious: Yes (Hospitalization, Other)
  Sender: FDA-Public Use
  Company Number: CA-RANBAXY-2009US-29243

PATIENT

DRUGS (4)
  1. CEFPROZIL [Suspect]
     Indication: ARTHROPOD BITE
     Dosage: UNK, UNK
     Route: 065
  2. MOXIFLOXACIN HCL [Suspect]
     Indication: ARTHROPOD BITE
     Route: 065
  3. PIPERACILLIN AND TAZOBACTAM [Suspect]
     Indication: ARTHROPOD BITE
     Route: 065
  4. FAMCICLOVIR [Suspect]
     Indication: HERPES ZOSTER
     Route: 065

REACTIONS (16)
  - ACUTE GENERALISED EXANTHEMATOUS PUSTULOSIS [None]
  - ACUTE LUNG INJURY [None]
  - ACUTE RESPIRATORY FAILURE [None]
  - EJECTION FRACTION DECREASED [None]
  - FATIGUE [None]
  - GENERALISED ERYTHEMA [None]
  - HYPOTENSION [None]
  - LEUKOCYTOSIS [None]
  - PULMONARY OEDEMA [None]
  - PYREXIA [None]
  - RASH [None]
  - RASH GENERALISED [None]
  - RASH PUSTULAR [None]
  - SINUS TACHYCARDIA [None]
  - SKIN LESION [None]
  - TONGUE DISORDER [None]
